FAERS Safety Report 14563287 (Version 1)
Quarter: 2018Q1

REPORT INFORMATION
  Report Type: Spontaneous
  Country: US (occurrence: US)
  Receive Date: 20180222
  Receipt Date: 20180222
  Transmission Date: 20180509
  Serious: Yes (Other)
  Sender: FDA-Public Use
  Company Number: US-PFIZER INC-2018069250

PATIENT
  Age: 66 Year
  Sex: Male
  Weight: 81.65 kg

DRUGS (2)
  1. ROBITUSSIN PEAK COLD COUGH PLUS CHEST CONGESTION DM [Suspect]
     Active Substance: DEXTROMETHORPHAN HYDROBROMIDE\GUAIFENESIN
     Indication: NASOPHARYNGITIS
     Dosage: 10ML BY MOUTH AS NEEDED
     Route: 048
     Dates: start: 20180213, end: 20180214
  2. LISINOPRIL. [Concomitant]
     Active Substance: LISINOPRIL
     Indication: BLOOD PRESSURE ABNORMAL
     Dosage: 10MG, ONE TABLET BY MOUTH DAILY
     Route: 048

REACTIONS (3)
  - Blood pressure increased [Not Recovered/Not Resolved]
  - Atrial fibrillation [Not Recovered/Not Resolved]
  - Heart rate increased [Not Recovered/Not Resolved]

NARRATIVE: CASE EVENT DATE: 20180214
